FAERS Safety Report 4502672-X (Version None)
Quarter: 2004Q3

REPORT INFORMATION
  Report Type: 
  Country: None (occurrence: None)
  Receive Date: 20040928
  Receipt Date: 20040607
  Transmission Date: 20050211
  Serious: No
  Sender: FDA-Public Use
  Company Number: 04P-163-0263153-00

PATIENT
  Age: 79 Year
  Sex: Female
  Weight: 48.9885 kg

DRUGS (3)
  1. HUMIRA [Suspect]
     Indication: RHEUMATOID ARTHRITIS
     Dosage: 40 MG, 1 IN 2 WK, SUBCUTANEOUS
     Route: 058
     Dates: start: 20040101
  2. FOLIC ACID [Concomitant]
  3. ATENOLOL [Concomitant]

REACTIONS (2)
  - RASH [None]
  - WEIGHT DECREASED [None]
